FAERS Safety Report 4535951-0 (Version None)
Quarter: 2004Q4

REPORT INFORMATION
  Report Type: 
  Country: None (occurrence: None)
  Receive Date: 20041222
  Receipt Date: 20041222
  Transmission Date: 20050328
  Serious: Yes (Hospitalization)
  Sender: FDA-Public Use
  Company Number: None

PATIENT
  Age: 40 Year
  Sex: Male
  Weight: 63.5036 kg

DRUGS (1)
  1. REMODULIN [Suspect]
     Dosage: 45MG/KG/MIN   CONTINUOUS
     Dates: start: 20041214

REACTIONS (2)
  - JOINT SWELLING [None]
  - SCROTAL SWELLING [None]
